FAERS Safety Report 6153174-9 (Version None)
Quarter: 2009Q2

REPORT INFORMATION
  Report Type: 
  Country: None (occurrence: None)
  Receive Date: 20090413
  Receipt Date: 20090402
  Transmission Date: 20091009
  Serious: Yes (Death, Hospitalization)
  Sender: FDA-Public Use
  Company Number: FR-ELI_LILLY_AND_COMPANY-FR200903002186

PATIENT
  Age: 76 Year
  Sex: Female
  Weight: 68 kg

DRUGS (5)
  1. FORTEO [Suspect]
     Indication: OSTEOPOROSIS
     Dosage: 20 UG, DAILY (1/D)
     Route: 058
     Dates: start: 20071010
  2. OROCAL D(3) [Concomitant]
     Indication: OSTEOPOROSIS
     Dosage: 2 D/F, DAILY (1/D)
     Route: 048
  3. VENTOLIN [Concomitant]
     Indication: ASTHMA
     Dosage: UNK, AS NEEDED
     Route: 065
  4. SPIRIVA [Concomitant]
     Indication: ASTHMA
     Dosage: 1 D/F, DAILY (1/D)
     Route: 048
     Dates: start: 20080901
  5. NICARDIPINE HCL [Concomitant]
     Indication: HYPERTENSION
     Dosage: 50 MG, 2/D
     Route: 048

REACTIONS (5)
  - ASCITES [None]
  - GASTROINTESTINAL HAEMORRHAGE [None]
  - HEPATIC CIRRHOSIS [None]
  - HIATUS HERNIA [None]
  - OESOPHAGITIS ULCERATIVE [None]
